FAERS Safety Report 17983451 (Version 1)
Quarter: 2020Q3

REPORT INFORMATION
  Report Type: Spontaneous
  Country: US (occurrence: US)
  Receive Date: 20200703
  Receipt Date: 20200703
  Transmission Date: 20201103
  Serious: Yes (Hospitalization)
  Sender: FDA-Public Use
  Company Number: None

PATIENT
  Age: 84 Year
  Sex: Male
  Weight: 93 kg

DRUGS (2)
  1. RITUXIMAB (RITUXIMAB 10MG/ML, VIL, 10ML) [Suspect]
     Active Substance: RITUXIMAB
     Indication: NEOPLASM MALIGNANT
     Route: 042
  2. WARFARIN (WARFARIN NA (EXELAN) 5MG TAB) [Suspect]
     Active Substance: WARFARIN SODIUM
     Indication: ATRIAL FIBRILLATION
     Route: 048
     Dates: end: 20200609

REACTIONS (4)
  - International normalised ratio abnormal [None]
  - Subdural haematoma [None]
  - Thrombocytopenia [None]
  - Haemorrhage [None]

NARRATIVE: CASE EVENT DATE: 20200609
